FAERS Safety Report 7051233-X (Version None)
Quarter: 2010Q4

REPORT INFORMATION
  Report Type: 
  Country: None (occurrence: None)
  Receive Date: 20101019
  Receipt Date: 20101005
  Transmission Date: 20110411
  Serious: Yes (Hospitalization)
  Sender: FDA-Public Use
  Company Number: DE-MYLANLABS-2010S1018259

PATIENT
  Age: 81 Year
  Sex: Female

DRUGS (10)
  1. FUROSEMID [Suspect]
     Indication: RENAL FAILURE
     Route: 048
     Dates: start: 20080101, end: 20100705
  2. LISINOPRIL HYDROCHLORTHIAZID [Suspect]
     Indication: HYPERTENSION
     Dosage: 20 MG LISINOPRIL; 12,5 MG HCT
     Route: 048
     Dates: start: 20060101
  3. VOLTAREN [Suspect]
     Indication: PAIN
     Dosage: 75 MG DICLOFENAC-NA (145,6 MG DICLOFENAC-COLESTYRAMIN)
     Route: 048
     Dates: start: 20100628, end: 20100708
  4. LASIX [Suspect]
     Indication: RENAL FAILURE
     Route: 048
     Dates: start: 20100705, end: 20100711
  5. METOPROLOL [Concomitant]
     Indication: CORONARY ARTERY DISEASE
     Route: 048
     Dates: start: 20040101
  6. AMLODIPINE [Concomitant]
     Indication: HYPERTENSION
     Route: 048
     Dates: start: 20000101
  7. SIMVASTATIN [Concomitant]
     Indication: CORONARY ARTERY DISEASE
     Route: 048
     Dates: start: 20040101
  8. OMEPRAZOLE [Concomitant]
     Indication: GASTROOESOPHAGEAL REFLUX DISEASE
     Route: 048
     Dates: start: 20070101
  9. CITALOPRAM HYDROBROMIDE [Concomitant]
     Indication: DEPRESSION
     Route: 048
     Dates: start: 20090101
  10. FALITHROM [Concomitant]
     Indication: ATRIAL FIBRILLATION
     Dosage: DOSIERUNG NACH INR, ZUR ZEIT PAUSIERT
     Route: 048
     Dates: start: 20090101

REACTIONS (2)
  - RENAL IMPAIRMENT [None]
  - VOMITING [None]
